FAERS Safety Report 6755999-5 (Version None)
Quarter: 2010Q2

REPORT INFORMATION
  Report Type: 
  Country: None (occurrence: None)
  Receive Date: 20100604
  Receipt Date: 20100601
  Transmission Date: 20101027
  Serious: Yes (Death, Hospitalization)
  Sender: FDA-Public Use
  Company Number: PHHY2010FR35841

PATIENT
  Sex: Male

DRUGS (5)
  1. LEPONEX [Suspect]
     Indication: SCHIZOPHRENIA
     Dosage: 3 DF, TID
     Dates: start: 20080601
  2. LEPONEX [Suspect]
     Dosage: 900 MG DAILY
     Dates: start: 20100101
  3. TERCIAN [Suspect]
     Dosage: 100 MG, QD
  4. THERALENE [Suspect]
     Dosage: 80 MG, QD
  5. TERALITHE [Concomitant]
     Dosage: 1000 MG DAILY

REACTIONS (6)
  - ABDOMINAL PAIN UPPER [None]
  - ASTHENIA [None]
  - DEATH [None]
  - HYPOTENSION [None]
  - ILEUS [None]
  - VOMITING [None]
